FAERS Safety Report 8759230 (Version 1)
Quarter: 2012Q4

REPORT INFORMATION
  Report Type: 
  Country: FR (occurrence: FR)
  Receive Date: 20120829
  Receipt Date: 20120829
  Transmission Date: 20130627
  Serious: Yes (Hospitalization, Other)
  Sender: FDA-Public Use
  Company Number: FR-ASTRAZENECA-2012SE60732

PATIENT
  Age: 788 Month
  Sex: Male

DRUGS (6)
  1. INEXIUM (ORAL) [Suspect]
     Route: 048
     Dates: start: 20120704, end: 20120710
  2. INEXIUM [Suspect]
     Route: 042
     Dates: start: 20120703, end: 20120703
  3. CONTRAMAL [Suspect]
     Route: 042
     Dates: start: 20120626, end: 20120630
  4. IXPRIM [Suspect]
     Route: 048
     Dates: start: 20120704, end: 20120710
  5. TOPALGIC [Suspect]
     Dosage: As required
     Route: 048
     Dates: start: 20120710, end: 20120712
  6. INNOHEP [Suspect]
     Route: 058
     Dates: start: 201207, end: 20120710

REACTIONS (5)
  - Rash pustular [Recovering/Resolving]
  - Eosinophilia [Recovering/Resolving]
  - Neutrophilia [Unknown]
  - Systemic inflammatory response syndrome [Unknown]
  - Erythema multiforme [Recovering/Resolving]
